FAERS Safety Report 8611053-9 (Version None)
Quarter: 2012Q3

REPORT INFORMATION
  Report Type: 
  Country: None (occurrence: None)
  Receive Date: 20120822
  Receipt Date: 20120814
  Transmission Date: 20120928
  Serious: No
  Sender: FDA-Public Use
  Company Number: US-BAYER-2012-084646

PATIENT
  Age: 61 Year
  Sex: Female
  Weight: 113.38 kg

DRUGS (4)
  1. LETROZOLE [Concomitant]
  2. VITAMIN D [Concomitant]
  3. ATORVASTATIN [Concomitant]
  4. ALEVE (CAPLET) [Suspect]
     Indication: ANALGESIC THERAPY
     Dosage: 2 DF, BID
     Route: 048
     Dates: start: 20120701

REACTIONS (1)
  - NO ADVERSE EVENT [None]
